FAERS Safety Report 9644105 (Version 1)
Quarter: 2013Q4

REPORT INFORMATION
  Report Type: Spontaneous
  Country: JP (occurrence: JP)
  Receive Date: 20131024
  Receipt Date: 20131024
  Transmission Date: 20140711
  Serious: Yes (Other)
  Sender: FDA-Public Use
  Company Number: JP-MYLANLABS-2013S1016341

PATIENT
  Age: 64 Year
  Sex: Male
  Weight: 58 kg

DRUGS (8)
  1. EPIRUBICIN [Suspect]
     Indication: HEPATOCELLULAR CARCINOMA
     Route: 013
     Dates: start: 20130415, end: 20130415
  2. OXYCONTIN [Concomitant]
     Indication: METASTASES TO BONE
     Route: 048
  3. OLOPATADINE [Concomitant]
     Indication: PRODUCT USED FOR UNKNOWN INDICATION
     Route: 048
  4. NIZATIDINE [Concomitant]
     Indication: GASTRITIS
     Route: 048
  5. POLAPREZINC [Concomitant]
     Indication: GASTRITIS
     Route: 048
  6. ACETAMINOPHEN [Concomitant]
     Indication: METASTASES TO BONE
     Route: 048
  7. URSODEOXYCHOLIC ACID [Concomitant]
     Indication: CHRONIC HEPATITIS
     Route: 048
  8. MAGMITT [Concomitant]
     Indication: CONSTIPATION
     Route: 048

REACTIONS (1)
  - Neurogenic bladder [Recovering/Resolving]
